FAERS Safety Report 13103580 (Version 1)
Quarter: 2017Q1

REPORT INFORMATION
  Report Type: Spontaneous
  Country: FR (occurrence: FR)
  Receive Date: 20170111
  Receipt Date: 20170111
  Transmission Date: 20170428
  Serious: Yes (Hospitalization)
  Sender: FDA-Public Use
  Company Number: FR-AUROBINDO-AUR-APL-2017-00096

PATIENT
  Age: 55 Year
  Sex: Male

DRUGS (11)
  1. TAZOCILLINE [Suspect]
     Active Substance: PIPERACILLIN SODIUM\TAZOBACTAM SODIUM
     Indication: FEBRILE BONE MARROW APLASIA
     Dosage: 4 G, 3 TIMES A DAY
     Route: 042
     Dates: start: 20161127, end: 20161204
  2. CARBOPLATIN. [Suspect]
     Active Substance: CARBOPLATIN
     Indication: TESTICULAR SEMINOMA (PURE)
     Dosage: 1480 MG, CYCLICAL
     Route: 041
     Dates: start: 20161121, end: 20161123
  3. ONDANSETRAN [Suspect]
     Active Substance: ONDANSETRON HYDROCHLORIDE
     Indication: NAUSEA
     Dosage: 4 MG, TWO TIMES A DAY
     Route: 042
     Dates: start: 20161128, end: 20161204
  4. LOPERAMIDE ARROW CAPSULE, HARD 2MG [Suspect]
     Active Substance: LOPERAMIDE
     Indication: DIARRHOEA
  5. PHLOROGLUCINOL ARROW [Suspect]
     Active Substance: PHLOROGLUCINOL
     Indication: ABDOMINAL PAIN
     Dosage: 1 DF, 3 TIMES A DAY
     Route: 048
     Dates: start: 20161202, end: 20161204
  6. NIVESTIM [Suspect]
     Active Substance: FILGRASTIM
     Indication: CHEMOTHERAPY CYTOKINE PROPHYLAXIS
     Dosage: 1 DF, TWO TIMES A DAY
     Route: 058
     Dates: start: 201611, end: 20161204
  7. ETOPOSIDE. [Suspect]
     Active Substance: ETOPOSIDE
     Indication: TESTICULAR SEMINOMA (PURE)
     Dosage: 2200 MG, CYCLICAL
     Route: 041
     Dates: start: 20161121, end: 20161123
  8. SMECTA [Suspect]
     Active Substance: MONTMORILLONITE
     Indication: DIARRHOEA
     Dosage: UNK
     Route: 048
     Dates: start: 20161127, end: 20161204
  9. TIORFAN [Suspect]
     Active Substance: RACECADOTRIL
     Indication: DIARRHOEA
     Dosage: UNK
     Route: 048
     Dates: start: 20161129, end: 20161204
  10. VANCOMYCIN [Suspect]
     Active Substance: VANCOMYCIN
     Indication: FEBRILE BONE MARROW APLASIA
     Dosage: 2 G, ONCE A DAY
     Route: 042
     Dates: start: 20161130, end: 20161202
  11. PRIMPERAN [Suspect]
     Active Substance: METOCLOPRAMIDE HYDROCHLORIDE
     Indication: NAUSEA
     Dosage: UNK
     Route: 048
     Dates: start: 20161129, end: 20161204

REACTIONS (1)
  - Acute kidney injury [Recovered/Resolved]

NARRATIVE: CASE EVENT DATE: 20161203
